FAERS Safety Report 5748051-9 (Version None)
Quarter: 2008Q2

REPORT INFORMATION
  Report Type: 
  Country: None (occurrence: None)
  Receive Date: 20080523
  Receipt Date: 20080513
  Transmission Date: 20081010
  Serious: Yes (Other)
  Sender: FDA-Public Use
  Company Number: US-ELI_LILLY_AND_COMPANY-US200805003405

PATIENT
  Sex: Female

DRUGS (3)
  1. CYMBALTA [Suspect]
     Indication: ANXIETY DISORDER
     Dosage: 30 MG, UNK
     Dates: start: 20070911, end: 20070917
  2. CYMBALTA [Suspect]
     Dosage: 60 MG, UNK
     Dates: start: 20070918, end: 20071017
  3. PAXIL [Concomitant]
     Indication: ANXIETY
     Dates: start: 20070201, end: 20070901

REACTIONS (4)
  - BUTTERFLY RASH [None]
  - CONTUSION [None]
  - DERMATITIS EXFOLIATIVE [None]
  - NAUSEA [None]
